FAERS Safety Report 22327576 (Version 1)
Quarter: 2023Q2

REPORT INFORMATION
  Report Type: Spontaneous
  Country: US (occurrence: US)
  Receive Date: 20230516
  Receipt Date: 20230516
  Transmission Date: 20230722
  Serious: No
  Sender: FDA-Public Use
  Company Number: US-RADIUS HEALTH INC.-2022US005478

PATIENT
  Age: 59 Year
  Sex: Female

DRUGS (3)
  1. TYMLOS [Suspect]
     Active Substance: ABALOPARATIDE
     Indication: Senile osteoporosis
     Dosage: 80 MICROGRAM, QD
     Route: 058
     Dates: start: 202108
  2. HAEMOPHILUS INFLUENZAE TYPE B [Suspect]
     Active Substance: HAEMOPHILUS INFLUENZAE TYPE B
     Indication: Immunisation
     Dosage: UNK
     Dates: start: 20221107, end: 20221107
  3. COVID-19 VACCINE NOS [Suspect]
     Active Substance: COVID-19 VACCINE NOS
     Indication: Immunisation
     Dosage: UNK
     Dates: start: 20221107, end: 20221107

REACTIONS (3)
  - Influenza like illness [Unknown]
  - Nausea [Unknown]
  - Vomiting [Unknown]

NARRATIVE: CASE EVENT DATE: 20221107
